FAERS Safety Report 5298192-8 (Version None)
Quarter: 2007Q2

REPORT INFORMATION
  Report Type: 
  Country: None (occurrence: None)
  Receive Date: 20070416
  Receipt Date: 20070402
  Transmission Date: 20071010
  Serious: Yes (Hospitalization, Other)
  Sender: FDA-Public Use
  Company Number: US-SHR-US-2004-036633

PATIENT
  Age: 63 Year
  Sex: Male
  Weight: 101.59 kg

DRUGS (14)
  1. GM-CSF (9874) [Suspect]
     Indication: CROHN'S DISEASE
     Dosage: 5 A?G/KG, 1X/DAY
     Route: 058
     Dates: start: 20040910, end: 20041107
  2. PREDNISONE TAB [Concomitant]
     Indication: CROHN'S DISEASE
     Dosage: 40 MG, 1X/DAY
     Route: 048
     Dates: start: 20040922, end: 20040928
  3. PREDNISONE TAB [Concomitant]
     Dosage: 30 MG, 1X/DAY
     Route: 048
     Dates: start: 20040929, end: 20041005
  4. PREDNISONE TAB [Concomitant]
     Dosage: 20 MG, 1X/DAY
     Route: 048
     Dates: start: 20041006, end: 20041012
  5. PREDNISONE TAB [Concomitant]
     Dosage: 15 MG, 1X/DAY
     Route: 048
     Dates: start: 20041013, end: 20041019
  6. PREDNISONE TAB [Concomitant]
     Dosage: 10 MG, 1X/DAY
     Route: 048
     Dates: start: 20041020, end: 20041104
  7. PREDNISONE TAB [Concomitant]
     Dosage: 40 MG, 1X/DAY
     Route: 048
     Dates: start: 20041123
  8. PREDNISONE TAB [Concomitant]
     Dosage: TITRATED FROM 20MG TO 2.5MG/DAY
     Route: 048
     Dates: start: 20040301, end: 20040823
  9. PREDNISONE TAB [Concomitant]
     Dosage: 15 MG DAILY
     Route: 048
     Dates: start: 20041013, end: 20041019
  10. NITROGLYCERIN [Concomitant]
     Dosage: .2 MG DAILY
     Route: 062
     Dates: start: 20041011, end: 20041025
  11. ACETYLSALICYLIC ACID SRT [Concomitant]
     Indication: PROPHYLAXIS
     Dosage: 81 MG, 1X/DAY
     Dates: start: 20041011
  12. ATENOLOL [Concomitant]
     Dosage: 25 MG DAILY
     Dates: start: 20041022
  13. PLAVIX [Concomitant]
     Indication: ARTERIOSCLEROSIS
     Dosage: 75 MG DAILY
     Dates: start: 20041022
  14. VITAMIN CAP [Concomitant]
     Indication: PROPHYLAXIS
     Dates: start: 20010901

REACTIONS (4)
  - ANGINA PECTORIS [None]
  - CORONARY ARTERY STENOSIS [None]
  - HYPOTENSION [None]
  - SUPRAVENTRICULAR TACHYCARDIA [None]
